FAERS Safety Report 8080636-X (Version None)
Quarter: 2012Q1

REPORT INFORMATION
  Report Type: 
  Country: None (occurrence: None)
  Receive Date: 20120130
  Receipt Date: 20120125
  Transmission Date: 20120608
  Serious: Yes (Disabling, Other)
  Sender: FDA-Public Use
  Company Number: DK-ABBOTT-12P-044-0897698-00

PATIENT
  Sex: Female

DRUGS (1)
  1. HUMIRA [Suspect]
     Indication: SERONEGATIVE ARTHRITIS
     Dates: start: 20081125, end: 20110908

REACTIONS (4)
  - COORDINATION ABNORMAL [None]
  - MULTIPLE SCLEROSIS [None]
  - FALL [None]
  - NEUROLOGICAL SYMPTOM [None]
